FAERS Safety Report 20538395 (Version 1)
Quarter: 2022Q1

REPORT INFORMATION
  Report Type: Spontaneous
  Country: FR (occurrence: FR)
  Receive Date: 20220302
  Receipt Date: 20220302
  Transmission Date: 20220423
  Serious: Yes (Hospitalization)
  Sender: FDA-Public Use
  Company Number: FR-JNJFOC-20210853337

PATIENT
  Age: 56 Year
  Sex: Male
  Weight: 78 kg

DRUGS (1)
  1. DARZALEX [Suspect]
     Active Substance: DARATUMUMAB
     Indication: Amyloidosis
     Route: 042

REACTIONS (7)
  - Dizziness [Unknown]
  - Chills [Unknown]
  - Headache [Unknown]
  - Diarrhoea [Unknown]
  - Off label use [Unknown]
  - Product use in unapproved indication [Unknown]
  - Product administration error [Unknown]

NARRATIVE: CASE EVENT DATE: 20210825
